FAERS Safety Report 4523169-7 (Version None)
Quarter: 2004Q4

REPORT INFORMATION
  Report Type: 
  Country: None (occurrence: None)
  Receive Date: 20041208
  Receipt Date: 20041129
  Transmission Date: 20050328
  Serious: Yes (Hospitalization)
  Sender: FDA-Public Use
  Company Number: K200401819

PATIENT
  Age: 87 Year
  Sex: Female

DRUGS (6)
  1. ALTACE [Suspect]
     Dosage: 1 TABLET, QD, ORAL
     Route: 048
     Dates: start: 20030101
  2. HYDROCHLOROTHIAZIDE [Suspect]
     Indication: HYPERTENSION
     Dosage: 1 TABLET, QD, ORAL
     Route: 048
     Dates: start: 20030101
  3. ACTRAPHANE HM (INSULIN HUMAN INJECTION, ISOPHANE) 30/70 [Suspect]
     Indication: DIABETES MELLITUS NON-INSULIN-DEPENDENT
     Dosage: 32 IU, QD, SUBCUTANEOUS
     Route: 058
     Dates: start: 20010101, end: 20040501
  4. ACTRAPHANE HM REGIMEN #2 [Suspect]
     Dosage: 26 IU, QD
     Dates: start: 20040501
  5. ALLOPURINOL [Concomitant]
  6. BAYOTENSIN (NITRENDIPINE) TABLET [Concomitant]

REACTIONS (2)
  - DRUG INTERACTION [None]
  - SHOCK HYPOGLYCAEMIC [None]
